FAERS Safety Report 24399850 (Version 3)
Quarter: 2024Q4

REPORT INFORMATION
  Report Type: Spontaneous
  Country: FR (occurrence: FR)
  Receive Date: 20241005
  Receipt Date: 20241125
  Transmission Date: 20250115
  Serious: Yes (Hospitalization, Other)
  Sender: AUROBINDO
  Company Number: FR-AFSSAPS-GR2024001152

PATIENT
  Age: 48 Year
  Sex: Female
  Weight: 73 kg

DRUGS (6)
  1. ARIPIPRAZOLE [Suspect]
     Active Substance: ARIPIPRAZOLE
     Indication: Product used for unknown indication
     Dosage: 400 MILLIGRAM (NP.400 MG/28 DAYS)
     Route: 048
     Dates: start: 20240905, end: 20240905
  2. LAMOTRIGINE [Suspect]
     Active Substance: LAMOTRIGINE
     Indication: Product used for unknown indication
     Dosage: UNK
     Route: 065
  3. QUETIAPINE [Suspect]
     Active Substance: QUETIAPINE
     Indication: Product used for unknown indication
     Dosage: 2.8 GRAM, 1 TOTAL
     Route: 048
     Dates: start: 20240905, end: 20240905
  4. QUETIAPINE [Suspect]
     Active Substance: QUETIAPINE
     Dosage: 300 MILLIGRAM, ONCE A DAY
     Route: 048
     Dates: start: 20240905, end: 20240905
  5. LORAZEPAM [Suspect]
     Active Substance: LORAZEPAM
     Indication: Product used for unknown indication
     Dosage: 75 MILLIGRAM, 1 TOTAL
     Route: 048
     Dates: start: 20240905, end: 20240905
  6. TERALITHE [Suspect]
     Active Substance: LITHIUM CARBONATE
     Indication: Product used for unknown indication
     Dosage: 2.8 GRAM, 1 TOTAL
     Route: 048
     Dates: start: 20240905, end: 20240905

REACTIONS (7)
  - Poisoning deliberate [Recovered/Resolved]
  - Loss of consciousness [Unknown]
  - Major depression [Unknown]
  - Confusional state [Unknown]
  - Somnolence [Recovered/Resolved]
  - Vomiting [Unknown]
  - Disorientation [Unknown]

NARRATIVE: CASE EVENT DATE: 20240905
